FAERS Safety Report 8092018-5 (Version None)
Quarter: 2012Q1

REPORT INFORMATION
  Report Type: 
  Country: None (occurrence: None)
  Receive Date: 20120129
  Receipt Date: 20111111
  Transmission Date: 20120608
  Serious: No
  Sender: FDA-Public Use
  Company Number: US-ABBOTT-11P-163-0868734-00

PATIENT
  Sex: Male
  Weight: 106.69 kg

DRUGS (6)
  1. METHOTREXATE [Suspect]
     Indication: PSORIATIC ARTHROPATHY
     Dates: start: 20110701, end: 20111013
  2. HUMIRA [Suspect]
     Dates: start: 20111011
  3. FOLIC ACID [Concomitant]
     Indication: PRODUCT USED FOR UNKNOWN INDICATION
     Dates: end: 20111013
  4. HUMIRA [Suspect]
     Indication: PSORIATIC ARTHROPATHY
     Dates: start: 20110916, end: 20110916
  5. VOLTAREN [Concomitant]
     Indication: PRODUCT USED FOR UNKNOWN INDICATION
     Dosage: HIPS AND LOWER BACK FEW DAYS, AS NEEDED
     Route: 061
  6. IBUPROFEN [Concomitant]
     Indication: PRODUCT USED FOR UNKNOWN INDICATION
     Dosage: 600MG, DAILY

REACTIONS (20)
  - MUSCULAR WEAKNESS [None]
  - ASTHENIA [None]
  - DRY SKIN [None]
  - RHEUMATOID ARTHRITIS [None]
  - BACK PAIN [None]
  - LETHARGY [None]
  - MUSCLE STRAIN [None]
  - MYALGIA [None]
  - ARTHRALGIA [None]
  - JOINT RANGE OF MOTION DECREASED [None]
  - ANKYLOSING SPONDYLITIS [None]
  - NONSPECIFIC REACTION [None]
  - INJECTION SITE HAEMATOMA [None]
  - RASH MACULAR [None]
  - ERYTHEMA [None]
  - PAIN IN EXTREMITY [None]
  - JOINT STIFFNESS [None]
  - FATIGUE [None]
  - MOBILITY DECREASED [None]
  - INJECTION SITE PAIN [None]
